FAERS Safety Report 7145415-6 (Version None)
Quarter: 2010Q4

REPORT INFORMATION
  Report Type: 
  Country: None (occurrence: None)
  Receive Date: 20101208
  Receipt Date: 20101204
  Transmission Date: 20110411
  Serious: Yes (Other)
  Sender: FDA-Public Use
  Company Number: US-PFIZER INC-2010164053

PATIENT
  Sex: Male
  Weight: 97.052 kg

DRUGS (9)
  1. VIAGRA [Suspect]
     Indication: ERECTILE DYSFUNCTION
     Dosage: 100 MG, AS NEEDED
     Route: 048
  2. TOPROL-XL [Concomitant]
     Indication: ARRHYTHMIA
     Dosage: 50 MG, 1X/DAY
     Route: 048
  3. TOPROL-XL [Concomitant]
     Indication: HYPERTENSION
  4. XANAX [Concomitant]
     Indication: ANXIETY
     Dosage: 1 MG, 4X/DAY
     Route: 048
  5. WELLBUTRIN [Concomitant]
     Indication: DEPRESSION
     Dosage: 300 MG, 1X/DAY
     Route: 048
  6. LEXAPRO [Concomitant]
     Indication: DEPRESSION
     Dosage: 10 MG, 1X/DAY
     Route: 048
  7. LISDEXAMFETAMINE DIMESYLATE [Concomitant]
     Indication: ATTENTION DEFICIT/HYPERACTIVITY DISORDER
     Dosage: 70 MG, 1X/DAY
     Route: 048
  8. LIPITOR [Concomitant]
     Indication: BLOOD CHOLESTEROL INCREASED
     Dosage: 10 MG, 1X/DAY
     Route: 048
  9. METFORMIN [Concomitant]
     Indication: DIABETES MELLITUS
     Dosage: 500 MG, 2X/DAY

REACTIONS (2)
  - CHEST DISCOMFORT [None]
  - DYSPNOEA [None]
